FAERS Safety Report 16425619 (Version 2)
Quarter: 2019Q4

REPORT INFORMATION
  Report Type: Spontaneous
  Country: US (occurrence: US)
  Receive Date: 20190613
  Receipt Date: 20191030
  Transmission Date: 20200122
  Serious: Yes (Hospitalization, Other)
  Sender: FDA-Public Use
  Company Number: US-PFIZER INC-2019251599

PATIENT
  Age: 69 Year
  Sex: Female

DRUGS (1)
  1. PREMARIN [Suspect]
     Active Substance: ESTROGENS, CONJUGATED
     Indication: HEART RATE IRREGULAR
     Dosage: UNK

REACTIONS (7)
  - Palpitations [Unknown]
  - Transient ischaemic attack [Unknown]
  - Product use in unapproved indication [Unknown]
  - Blood oestrogen decreased [Unknown]
  - Off label use [Unknown]
  - Myocardial infarction [Unknown]
  - Heart rate decreased [Unknown]
